FAERS Safety Report 6583003-0 (Version None)
Quarter: 2010Q1

REPORT INFORMATION
  Report Type: 
  Country: None (occurrence: None)
  Receive Date: 20100216
  Receipt Date: 20100202
  Transmission Date: 20100710
  Serious: Yes (Hospitalization, Other)
  Sender: FDA-Public Use
  Company Number: US-CELGENEUS-163-20785-09121189

PATIENT
  Sex: Male

DRUGS (8)
  1. THALOMID [Suspect]
     Indication: LEPROMATOUS LEPROSY
     Route: 048
     Dates: start: 20080304, end: 20090125
  2. THALOMID [Suspect]
     Route: 048
     Dates: start: 20090729
  3. CORTICOSTEROIDS [Suspect]
     Indication: DRUG USE FOR UNKNOWN INDICATION
     Route: 065
  4. RIFAMPIN [Concomitant]
     Indication: DRUG USE FOR UNKNOWN INDICATION
     Route: 065
  5. MINOCYCLINE HCL [Concomitant]
     Indication: DRUG USE FOR UNKNOWN INDICATION
     Route: 065
  6. CLARITHROMYCIN [Concomitant]
     Indication: DRUG USE FOR UNKNOWN INDICATION
     Route: 065
  7. DAPSONE [Concomitant]
     Indication: DRUG USE FOR UNKNOWN INDICATION
     Route: 065
  8. PREDNISONE [Concomitant]
     Indication: DRUG USE FOR UNKNOWN INDICATION
     Route: 065

REACTIONS (2)
  - POSTOPERATIVE WOUND INFECTION [None]
  - STAPHYLOCOCCAL SEPSIS [None]
